FAERS Safety Report 8359249-8 (Version None)
Quarter: 2012Q2

REPORT INFORMATION
  Report Type: 
  Country: None (occurrence: None)
  Receive Date: 20120515
  Receipt Date: 20120508
  Transmission Date: 20120825
  Serious: Yes (Death, Other)
  Sender: FDA-Public Use
  Company Number: JP-CELGENEUS-087-50794-12042410

PATIENT
  Sex: Male
  Weight: 82 kg

DRUGS (10)
  1. BACTRIM [Concomitant]
     Route: 065
  2. LASIX [Concomitant]
     Route: 065
     Dates: start: 20120317
  3. VIDAZA [Suspect]
     Dosage: 75 MILLIGRAM/SQ. METER
     Route: 058
     Dates: start: 20120112, end: 20120116
  4. DESYREL [Concomitant]
     Route: 065
     Dates: start: 20120306, end: 20120316
  5. VIDAZA [Suspect]
     Dosage: 75 MILLIGRAM/SQ. METER
     Route: 058
     Dates: start: 20120224, end: 20120228
  6. CLARITHROMYCIN [Concomitant]
     Route: 065
     Dates: start: 20120313
  7. MAGMITT [Concomitant]
     Route: 065
  8. MIYA BM [Concomitant]
     Route: 065
  9. ITRACONAZOLE [Concomitant]
     Route: 065
  10. RABEPRAZOLE SODIUM [Concomitant]
     Route: 065

REACTIONS (4)
  - PNEUMONIA [None]
  - NEUTROPHIL COUNT DECREASED [None]
  - WHITE BLOOD CELL COUNT DECREASED [None]
  - PLATELET COUNT DECREASED [None]
